FAERS Safety Report 4964640-3 (Version None)
Quarter: 2006Q1

REPORT INFORMATION
  Report Type: 
  Country: None (occurrence: None)
  Receive Date: 20060331
  Receipt Date: 20060317
  Transmission Date: 20060701
  Serious: Yes (Other)
  Sender: FDA-Public Use
  Company Number: CA200603005327

PATIENT
  Age: 63 Year
  Sex: Female

DRUGS (4)
  1. EVISTA [Suspect]
     Dates: end: 20060316
  2. ASPIRIN [Concomitant]
  3. CALCIUM          (CALCIUM) [Concomitant]
  4. VITAMIN D [Concomitant]

REACTIONS (2)
  - CEREBRAL THROMBOSIS [None]
  - DEMENTIA ALZHEIMER'S TYPE [None]
